FAERS Safety Report 24723828 (Version 1)
Quarter: 2024Q4

REPORT INFORMATION
  Report Type: Spontaneous
  Country: FR (occurrence: FR)
  Receive Date: 20241211
  Receipt Date: 20241211
  Transmission Date: 20250115
  Serious: Yes (Other)
  Sender: MYLAN
  Company Number: FR-PFIZER INC-PV202400148236

PATIENT
  Age: 60 Year
  Sex: Male
  Weight: 82 kg

DRUGS (7)
  1. EFFEXOR [Interacting]
     Active Substance: VENLAFAXINE HYDROCHLORIDE
     Indication: Product used for unknown indication
     Dosage: 112.5 MILLIGRAM, QD (75 MG PLUS 37.5 MG DAILY)
     Route: 065
     Dates: start: 20210608
  2. VFEND [Interacting]
     Active Substance: VORICONAZOLE
     Indication: Aspergillus infection
     Dosage: 200 MILLIGRAM, QD
     Route: 048
     Dates: start: 20240811
  3. VFEND [Interacting]
     Active Substance: VORICONAZOLE
     Dosage: 400 MILLIGRAM, DAILY AT NOON
     Route: 048
     Dates: start: 20240911
  4. VFEND [Interacting]
     Active Substance: VORICONAZOLE
     Dosage: 600 MILLIGRAM, QD
     Route: 048
     Dates: start: 20240923, end: 20241019
  5. LAMICTAL [Concomitant]
     Active Substance: LAMOTRIGINE
     Dosage: 150 MILLIGRAM, QD (DAILY)
     Route: 065
  6. CARBIMAZOLE [Concomitant]
     Active Substance: CARBIMAZOLE
     Dosage: 5 MILLIGRAM, QD (DAILY)
     Route: 065
  7. ASPIRIN [Concomitant]
     Active Substance: ASPIRIN
     Dosage: 100 MILLIGRAM, QD (DAILY)
     Route: 065

REACTIONS (17)
  - Serotonin syndrome [Unknown]
  - Drug interaction [Unknown]
  - Depression [Unknown]
  - Aggression [Recovering/Resolving]
  - Speech disorder [Unknown]
  - Impulsive behaviour [Recovering/Resolving]
  - Weight fluctuation [Unknown]
  - Disturbance in attention [Unknown]
  - Vertigo [Unknown]
  - Decreased appetite [Unknown]
  - Insomnia [Unknown]
  - Headache [Unknown]
  - Nausea [Unknown]
  - Fatigue [Unknown]
  - Hyperhidrosis [Unknown]
  - Confusional state [Unknown]
  - Agitation [Recovering/Resolving]

NARRATIVE: CASE EVENT DATE: 20240101
